FAERS Safety Report 5527672-2 (Version None)
Quarter: 2007Q4

REPORT INFORMATION
  Report Type: 
  Country: None (occurrence: None)
  Receive Date: 20071121
  Receipt Date: 20071105
  Transmission Date: 20080405
  Serious: Yes (Disabling)
  Sender: FDA-Public Use
  Company Number: 10E20071630

PATIENT
  Age: 16 Year
  Sex: Female

DRUGS (1)
  1. SOMATULINE DEPOT [Suspect]
     Indication: BODY HEIGHT ABOVE NORMAL
     Dosage: 90 MG/MONTH
     Dates: start: 20060501, end: 20070401

REACTIONS (3)
  - OPERATIVE HAEMORRHAGE [None]
  - OVERDOSE [None]
  - PERITONEAL HAEMORRHAGE [None]
